FAERS Safety Report 14361800 (Version 1)
Quarter: 2018Q1

REPORT INFORMATION
  Report Type: Spontaneous
  Country: DK (occurrence: DK)
  Receive Date: 20180108
  Receipt Date: 20180108
  Transmission Date: 20180509
  Serious: Yes (Other)
  Sender: FDA-Public Use
  Company Number: DK-CIPLA LTD.-2017DK30690

PATIENT

DRUGS (7)
  1. ZOLEDRONIC ACID [Suspect]
     Active Substance: ZOLEDRONIC ACID
     Indication: OSTEOPOROSIS
     Dosage: DOSIS: 5000 ?G - STYRKE: 4 MG/5 ML
     Route: 042
     Dates: start: 20171017, end: 201711
  2. NOVORAPID [Concomitant]
     Active Substance: INSULIN ASPART
     Indication: DIABETES MELLITUS
     Dosage: STYRKE: 100 E/ML. DOSIS: 5 ENHEDER MORGEN, 4 ENHEDER MIDDAG OG 5 ENHEDER AFTEN ()
     Route: 065
     Dates: start: 20131228
  3. PINEX [Concomitant]
     Active Substance: ACETAMINOPHEN
     Indication: PAIN
     Dosage: STYRKE: 500 MG - DOSIS: 2 TABLETTER EFTER BEHOV, H?JST 4 GANGE DAGLIGT
     Route: 048
     Dates: start: 20091101
  4. MOVICOL [Concomitant]
     Active Substance: POLYETHYLENE GLYCOL 3350\POTASSIUM CHLORIDE\SODIUM BICARBONATE\SODIUM CHLORIDE
     Indication: CONSTIPATION
     Dosage: DOSIS: VED BEHOV
     Route: 048
     Dates: start: 20141122
  5. TOUJEO [Concomitant]
     Active Substance: INSULIN GLARGINE
     Indication: DIABETES MELLITUS
     Dosage: STYRKE: 300 ENHEDER/ML
     Route: 065
     Dates: start: 20140326
  6. RAMIPRIL/HYDROCHLORTHIAZID ^1A FARMA^ [Concomitant]
     Indication: HYPERTENSION
     Dosage: STYRKE: 5+25 MG
     Route: 048
     Dates: start: 20130121
  7. FELODIN [Concomitant]
     Active Substance: FELODIPINE
     Indication: HYPERTENSION
     Dosage: STYRKE: 10 MG
     Route: 048
     Dates: start: 20160219

REACTIONS (4)
  - Stress fracture [Recovered/Resolved]
  - Foot fracture [Recovered/Resolved]
  - Pain in extremity [Recovered/Resolved]
  - Peripheral swelling [Recovered/Resolved]

NARRATIVE: CASE EVENT DATE: 201710
